FAERS Safety Report 19894058 (Version 9)
Quarter: 2022Q3

REPORT INFORMATION
  Report Type: Report from Study
  Country: US (occurrence: US)
  Receive Date: 20210929
  Receipt Date: 20220927
  Transmission Date: 20221027
  Serious: Yes (Other)
  Sender: FDA-Public Use
  Company Number: NVSC2021US217764

PATIENT
  Sex: Female
  Weight: 45.359 kg

DRUGS (14)
  1. TREPROSTINIL [Interacting]
     Active Substance: TREPROSTINIL
     Indication: Pulmonary arterial hypertension
     Dosage: 44 NG/KG/MIN
     Route: 042
     Dates: start: 20210826
  2. TREPROSTINIL [Interacting]
     Active Substance: TREPROSTINIL
     Dosage: 80 NG/KG/MIN, CONT
     Route: 042
     Dates: start: 20210826
  3. TREPROSTINIL [Interacting]
     Active Substance: TREPROSTINIL
     Dosage: UNK UNK, CONT
     Route: 041
     Dates: start: 2021
  4. TREPROSTINIL [Interacting]
     Active Substance: TREPROSTINIL
     Dosage: 42 NG/KG/MIN
     Route: 041
     Dates: start: 2021
  5. TREPROSTINIL [Interacting]
     Active Substance: TREPROSTINIL
     Dosage: 44 NG/KG/MIN
     Route: 041
     Dates: start: 20210922
  6. TREPROSTINIL [Interacting]
     Active Substance: TREPROSTINIL
     Dosage: 72 NG/KG/MIN, CONT
     Route: 042
  7. TREPROSTINIL [Interacting]
     Active Substance: TREPROSTINIL
     Dosage: 80 NG/KG/MIN, CONT
     Route: 042
  8. TREPROSTINIL [Interacting]
     Active Substance: TREPROSTINIL
     Dosage: 80 NG/KG/MIN, CONT
     Route: 042
  9. TREPROSTINIL [Interacting]
     Active Substance: TREPROSTINIL
     Dosage: 80 NG/KG/MIN, CONT
     Route: 042
  10. TREPROSTINIL [Interacting]
     Active Substance: TREPROSTINIL
     Dosage: 80 NG/KG/MIN, CONT
     Route: 042
  11. TADALAFIL [Concomitant]
     Active Substance: TADALAFIL
     Indication: Product used for unknown indication
     Dosage: UNK
     Route: 065
  12. UPTRAVI [Concomitant]
     Active Substance: SELEXIPAG
     Indication: Product used for unknown indication
     Dosage: UNK
     Route: 065
  13. ELIQUIS [Concomitant]
     Active Substance: APIXABAN
     Indication: Product used for unknown indication
     Dosage: UNK
     Route: 065
  14. OPSUMIT [Concomitant]
     Active Substance: MACITENTAN
     Indication: Product used for unknown indication
     Dosage: UNK
     Route: 065
     Dates: start: 20211215

REACTIONS (13)
  - Syncope [Unknown]
  - Fall [Recovered/Resolved]
  - Head injury [Unknown]
  - Dizziness [Unknown]
  - Weight increased [Unknown]
  - Decreased appetite [Unknown]
  - Weight decreased [Unknown]
  - Fluid retention [Unknown]
  - Urinary tract infection [Unknown]
  - Nasal congestion [Unknown]
  - Oxygen saturation decreased [Unknown]
  - Drug interaction [Unknown]
  - Dyspnoea [Unknown]

NARRATIVE: CASE EVENT DATE: 20210101
